FAERS Safety Report 6908478-6 (Version None)
Quarter: 2010Q3

REPORT INFORMATION
  Report Type: 
  Country: None (occurrence: None)
  Receive Date: 20100805
  Receipt Date: 20100725
  Transmission Date: 20110219
  Serious: Yes (Other)
  Sender: FDA-Public Use
  Company Number: US-PFIZER INC-2010092973

PATIENT
  Sex: Female
  Weight: 57.143 kg

DRUGS (1)
  1. CHANTIX [Suspect]
     Indication: SMOKING CESSATION THERAPY
     Dosage: 0.5 MG DAILY
     Route: 048
     Dates: start: 20100704

REACTIONS (3)
  - HEADACHE [None]
  - SUPERFICIAL INJURY OF EYE [None]
  - TONGUE DISORDER [None]
